FAERS Safety Report 13653813 (Version 1)
Quarter: 2017Q2

REPORT INFORMATION
  Report Type: Spontaneous
  Country: FR (occurrence: FR)
  Receive Date: 20170614
  Receipt Date: 20170614
  Transmission Date: 20170830
  Serious: Yes (Other)
  Sender: FDA-Public Use
  Company Number: FR-BAYER-2017-110731

PATIENT
  Sex: Female

DRUGS (1)
  1. MIRENA [Suspect]
     Active Substance: LEVONORGESTREL
     Indication: CONTRACEPTION
     Dosage: 20 MCG/24HR, CONT
     Route: 015

REACTIONS (9)
  - Anxiety [Unknown]
  - Skin disorder [Unknown]
  - Aggression [Unknown]
  - Irritability [Unknown]
  - Pain [Unknown]
  - Acne [Unknown]
  - Migraine [Unknown]
  - Loss of libido [Unknown]
  - Vision blurred [Unknown]
